FAERS Safety Report 14983598 (Version 5)
Quarter: 2018Q4

REPORT INFORMATION
  Report Type: Other
  Country: US (occurrence: US)
  Receive Date: 20180607
  Receipt Date: 20181221
  Transmission Date: 20190204
  Serious: Yes (Other)
  Sender: FDA-Public Use
  Company Number: US-ACORDA-ACO_150596_2018

PATIENT
  Age: 61 Year
  Sex: Female
  Weight: 87.08 kg

DRUGS (6)
  1. GABAPENTIN. [Concomitant]
     Active Substance: GABAPENTIN
     Indication: PRODUCT USED FOR UNKNOWN INDICATION
     Dosage: 300 MG, TID
     Route: 065
  2. AMPYRA [Suspect]
     Active Substance: DALFAMPRIDINE
     Indication: MULTIPLE SCLEROSIS
     Dosage: 10 MILLIGRAM, BID
     Route: 048
     Dates: start: 20181205
  3. VITAMIN D [Concomitant]
     Active Substance: CHOLECALCIFEROL
     Indication: PRODUCT USED FOR UNKNOWN INDICATION
     Dosage: 8000 IU, QD
     Route: 065
  4. TECFIDERA [Suspect]
     Active Substance: DIMETHYL FUMARATE
     Dosage: 240 MG, BID (MAINTENANCE DOSE)
     Route: 048
     Dates: start: 2017
  5. AMPYRA [Suspect]
     Active Substance: DALFAMPRIDINE
     Indication: GAIT DISTURBANCE
     Dosage: 10 MG, BID
     Route: 048
  6. TECFIDERA [Suspect]
     Active Substance: DIMETHYL FUMARATE
     Indication: MULTIPLE SCLEROSIS
     Dosage: 120 MG, BID (STRATING DOSE)
     Route: 048

REACTIONS (45)
  - Loss of personal independence in daily activities [Recovering/Resolving]
  - Clumsiness [Unknown]
  - Fall [Unknown]
  - Lhermitte^s sign [Unknown]
  - Hypoaesthesia [Unknown]
  - General physical health deterioration [Unknown]
  - Burning sensation [Unknown]
  - Weight decreased [Unknown]
  - Diplopia [Unknown]
  - Dysarthria [Unknown]
  - Urinary tract infection [Unknown]
  - Visual field defect [Unknown]
  - Dysgraphia [Unknown]
  - Cognitive disorder [Unknown]
  - Therapy cessation [Unknown]
  - Visual acuity reduced [Unknown]
  - Sexual dysfunction [Unknown]
  - Depression [Unknown]
  - Condition aggravated [Unknown]
  - Gait inability [Recovering/Resolving]
  - Pyrexia [Unknown]
  - Pain [Unknown]
  - Vertigo [Unknown]
  - Uhthoff^s phenomenon [Unknown]
  - Muscle spasms [Unknown]
  - Fine motor skill dysfunction [Unknown]
  - Anal incontinence [Unknown]
  - Anxiety [Unknown]
  - Affect lability [Unknown]
  - Pain [Recovering/Resolving]
  - Vision blurred [Unknown]
  - Dysphagia [Unknown]
  - Urinary hesitation [Unknown]
  - Fatigue [Unknown]
  - Paraesthesia [Unknown]
  - Urinary incontinence [Unknown]
  - Fall [Recovered/Resolved]
  - Memory impairment [Unknown]
  - Asthenia [Unknown]
  - Constipation [Unknown]
  - Muscular weakness [Unknown]
  - Pollakiuria [Unknown]
  - Micturition urgency [Unknown]
  - Head injury [Not Recovered/Not Resolved]
  - Gait disturbance [Unknown]

NARRATIVE: CASE EVENT DATE: 201811
